FAERS Safety Report 13820633 (Version 4)
Quarter: 2023Q2

REPORT INFORMATION
  Report Type: Report from Study
  Country: ES (occurrence: ES)
  Receive Date: 20170801
  Receipt Date: 20230615
  Transmission Date: 20230721
  Serious: Yes (Life-Threatening, Hospitalization, Other)
  Sender: FDA-Public Use
  Company Number: ES-ABBVIE-17P-144-2053079-00

PATIENT
  Age: 44 Year
  Sex: Male

DRUGS (7)
  1. HUMIRA [Suspect]
     Active Substance: ADALIMUMAB
     Indication: Colitis ulcerative
     Route: 058
     Dates: start: 20100701, end: 201701
  2. MESALAMINE [Concomitant]
     Active Substance: MESALAMINE
     Indication: Colitis ulcerative
     Route: 054
     Dates: start: 20060530, end: 200801
  3. MESALAMINE [Concomitant]
     Active Substance: MESALAMINE
     Indication: Colitis ulcerative
     Dosage: 2,4 GRAM
     Route: 048
     Dates: start: 20100715
  4. CLOPIDOGREL [Concomitant]
     Active Substance: CLOPIDOGREL BISULFATE
     Indication: Peripheral arterial occlusive disease
     Route: 048
     Dates: start: 20130110
  5. BISOPROLOL [Concomitant]
     Active Substance: BISOPROLOL
     Indication: Peripheral arterial occlusive disease
     Route: 048
     Dates: start: 20130111
  6. ATORVASTATIN [Concomitant]
     Active Substance: ATORVASTATIN
     Indication: Peripheral arterial occlusive disease
     Route: 048
     Dates: start: 20130110
  7. PANTOPRAZOLE [Concomitant]
     Active Substance: PANTOPRAZOLE
     Indication: Gastric disorder
     Route: 048
     Dates: start: 20110111

REACTIONS (1)
  - Adenocarcinoma of colon [Recovered/Resolved]

NARRATIVE: CASE EVENT DATE: 20170112
